FAERS Safety Report 18435512 (Version 1)
Quarter: 2020Q4

REPORT INFORMATION
  Report Type: Spontaneous
  Country: US (occurrence: US)
  Receive Date: 20201028
  Receipt Date: 20201028
  Transmission Date: 20210114
  Serious: Yes (Disabling)
  Sender: FDA-Public Use
  Company Number: None

PATIENT
  Age: 56 Year
  Weight: 76.5 kg

DRUGS (1)
  1. METHYLPREDNISOLONE. [Suspect]
     Active Substance: METHYLPREDNISOLONE
     Indication: BACK PAIN
     Route: 008
     Dates: start: 20200729, end: 20200729

REACTIONS (10)
  - Oedema [None]
  - Lip swelling [None]
  - Muscular weakness [None]
  - Gait disturbance [None]
  - Insomnia [None]
  - Paraesthesia [None]
  - Hypoaesthesia [None]
  - Gingival swelling [None]
  - Peroneal nerve palsy [None]
  - Alopecia [None]

NARRATIVE: CASE EVENT DATE: 20200729
